FAERS Safety Report 7081156-1 (Version None)
Quarter: 2010Q4

REPORT INFORMATION
  Report Type: 
  Country: None (occurrence: None)
  Receive Date: 20101103
  Receipt Date: 20101028
  Transmission Date: 20110411
  Serious: Yes (Other)
  Sender: FDA-Public Use
  Company Number: B0681681A

PATIENT
  Sex: Male

DRUGS (10)
  1. AUGMENTIN '125' [Suspect]
     Indication: CHOLANGITIS
     Dosage: 1G THREE TIMES PER DAY
     Route: 042
     Dates: start: 20100806, end: 20100808
  2. FLAGYL [Suspect]
     Indication: CHOLANGITIS
     Dosage: 1UNIT TWICE PER DAY
     Route: 042
     Dates: start: 20100806, end: 20100806
  3. CIFLOX [Concomitant]
     Dosage: 400MG TWICE PER DAY
     Route: 042
     Dates: start: 20100807
  4. PERFALGAN [Concomitant]
     Dosage: 1G FOUR TIMES PER DAY
     Route: 042
     Dates: start: 20100806, end: 20100809
  5. LASIX [Concomitant]
     Route: 065
     Dates: start: 20100809
  6. NEXIUM [Concomitant]
     Dosage: 20MG PER DAY
     Route: 048
     Dates: end: 20100807
  7. SECTRAL [Concomitant]
     Route: 065
  8. ALLOPURINOL [Concomitant]
     Route: 065
  9. AMLODIPINE [Concomitant]
     Route: 065
  10. KARDEGIC [Concomitant]
     Route: 065

REACTIONS (1)
  - THROMBOCYTOPENIA [None]
